FAERS Safety Report 7607649-3 (Version None)
Quarter: 2011Q3

REPORT INFORMATION
  Report Type: 
  Country: None (occurrence: None)
  Receive Date: 20110713
  Receipt Date: 20110429
  Transmission Date: 20111222
  Serious: Yes (Other)
  Sender: FDA-Public Use
  Company Number: PHHY2011BR36597

PATIENT

DRUGS (2)
  1. GLEEVEC [Suspect]
     Dosage: 400 MG, QD
  2. GLEEVEC [Suspect]
     Dosage: 600 MG, QD

REACTIONS (1)
  - HAEMATOLOGY TEST ABNORMAL [None]
